FAERS Safety Report 23989354 (Version 1)
Quarter: 2024Q2

REPORT INFORMATION
  Report Type: Report from Study
  Country: ES (occurrence: ES)
  Receive Date: 20240619
  Receipt Date: 20240619
  Transmission Date: 20240716
  Serious: Yes (Other)
  Sender: FDA-Public Use
  Company Number: None

PATIENT
  Age: 56 Year
  Sex: Female

DRUGS (1)
  1. RINVOQ [Suspect]
     Active Substance: UPADACITINIB
     Indication: Psoriatic arthropathy
     Dosage: 15 MG /24 H
     Route: 048
     Dates: start: 20221102, end: 20230801

REACTIONS (1)
  - Encephalitis autoimmune [Unknown]

NARRATIVE: CASE EVENT DATE: 20230801
